FAERS Safety Report 9451472 (Version 2)
Quarter: 2014Q1

REPORT INFORMATION
  Report Type: Spontaneous
  Country: SE (occurrence: SE)
  Receive Date: 20130810
  Receipt Date: 20140312
  Transmission Date: 20141002
  Serious: Yes (Other)
  Sender: FDA-Public Use
  Company Number: SE-ROCHE-1258739

PATIENT
  Age: 48 Year
  Sex: Female

DRUGS (1)
  1. COPEGUS [Suspect]
     Indication: CHRONIC HEPATITIS C
     Route: 065
     Dates: start: 20071109

REACTIONS (1)
  - Visual impairment [Unknown]
